FAERS Safety Report 26072453 (Version 2)
Quarter: 2025Q4

REPORT INFORMATION
  Report Type: Spontaneous
  Country: US (occurrence: US)
  Receive Date: 20251120
  Receipt Date: 20251121
  Transmission Date: 20260118
  Serious: No
  Sender: NOVO NORDISK
  Company Number: US-NOVOPROD-1466218

PATIENT
  Age: 80 Year
  Sex: Male

DRUGS (2)
  1. TRESIBA [Suspect]
     Active Substance: INSULIN DEGLUDEC
     Indication: Diabetes mellitus
     Dates: end: 20250525
  2. FIASP [Suspect]
     Active Substance: INSULIN ASPART
     Indication: Diabetes mellitus
     Dates: end: 20250525

REACTIONS (3)
  - Feeling abnormal [Unknown]
  - Hypersensitivity [Unknown]
  - Injection site rash [Unknown]

NARRATIVE: CASE EVENT DATE: 20250105
